FAERS Safety Report 4996021-0 (Version None)
Quarter: 2006Q2

REPORT INFORMATION
  Report Type: 
  Country: None (occurrence: None)
  Receive Date: 20060508
  Receipt Date: 20060427
  Transmission Date: 20061013
  Serious: Yes (Hospitalization)
  Sender: FDA-Public Use
  Company Number: US-MERCK-0604USA04184

PATIENT
  Age: 76 Year
  Sex: Male
  Weight: 89 kg

DRUGS (12)
  1. LESCOL [Concomitant]
     Route: 065
  2. WARFARIN SODIUM [Concomitant]
     Route: 065
  3. ZOCOR [Concomitant]
     Route: 065
  4. KLOR-CON [Concomitant]
     Route: 065
  5. FUROSEMIDE [Concomitant]
     Route: 065
  6. VIOXX [Suspect]
     Indication: PAIN
     Route: 048
     Dates: start: 20011001, end: 20021001
  7. ISOSORBIDE [Concomitant]
     Route: 048
  8. TOPROL-XL [Concomitant]
     Route: 065
  9. PLAVIX [Concomitant]
     Route: 065
  10. PROSCAR [Concomitant]
     Route: 065
  11. FLOMAX (MORNIFLUMATE) [Concomitant]
     Route: 065
  12. PROTONIX [Concomitant]
     Route: 065

REACTIONS (1)
  - CEREBROVASCULAR ACCIDENT [None]
